FAERS Safety Report 12502356 (Version 1)
Quarter: 2016Q2

REPORT INFORMATION
  Report Type: Spontaneous
  Country: AR (occurrence: AR)
  Receive Date: 20160627
  Receipt Date: 20160627
  Transmission Date: 20160815
  Serious: Yes (Other)
  Sender: FDA-Public Use
  Company Number: AR-GILEAD-2016-0220190

PATIENT
  Age: 67 Year
  Sex: Male

DRUGS (2)
  1. HEPSERA [Suspect]
     Active Substance: ADEFOVIR DIPIVOXIL
     Indication: CHRONIC HEPATITIS B
     Dosage: UNK UNKNOWN, UNK
     Route: 065
  2. ENTECAVIR. [Suspect]
     Active Substance: ENTECAVIR
     Indication: CHRONIC HEPATITIS B
     Dosage: UNK UNKNOWN, UNK
     Route: 065

REACTIONS (12)
  - Multiple fractures [Unknown]
  - Osteopenia [Unknown]
  - Proteinuria [Unknown]
  - Glycosuria [Unknown]
  - Osteomalacia [Recovering/Resolving]
  - Hypophosphataemia [Unknown]
  - Epiphyseal fracture [Unknown]
  - Osteoporosis [Unknown]
  - Fanconi syndrome acquired [Recovering/Resolving]
  - Gait disturbance [Unknown]
  - Hypercalciuria [Unknown]
  - Arthralgia [Unknown]
